FAERS Safety Report 9271111 (Version 1)
Quarter: 2013Q2

REPORT INFORMATION
  Report Type: Spontaneous
  Country: US (occurrence: US)
  Receive Date: 20130506
  Receipt Date: 20130506
  Transmission Date: 20140414
  Serious: Yes (Other)
  Sender: FDA-Public Use
  Company Number: CHPA2013US007410

PATIENT
  Sex: Female

DRUGS (4)
  1. LAMISIL AT CONTINUOUS SPRAY, ATHLETE^S FOOT [Suspect]
     Indication: TINEA INFECTION
     Dosage: UNK, BID
     Route: 061
     Dates: start: 2007
  2. LAMISIL [Suspect]
     Indication: TINEA INFECTION
     Dosage: UNK, UNK
     Route: 048
     Dates: end: 2011
  3. LAMISIL [Suspect]
     Dosage: UNK, UNK
     Route: 048
     Dates: start: 2007
  4. TERBINAFINE HYDROCHLORIDE [Concomitant]
     Indication: TINEA INFECTION
     Dosage: UNK, UNK
     Route: 061

REACTIONS (2)
  - Uterine polyp [Unknown]
  - Disease recurrence [Unknown]
